FAERS Safety Report 8686885 (Version 3)
Quarter: 2013Q4

REPORT INFORMATION
  Report Type: Spontaneous
  Country: BR (occurrence: BR)
  Receive Date: 20120727
  Receipt Date: 20131029
  Transmission Date: 20140711
  Serious: Yes (Other)
  Sender: FDA-Public Use
  Company Number: BR-JNJFOC-20120710750

PATIENT
  Sex: Male
  Weight: 120 kg

DRUGS (5)
  1. REMICADE [Suspect]
     Indication: PSORIATIC ARTHROPATHY
     Route: 042
     Dates: start: 20120430
  2. REMICADE [Suspect]
     Indication: PSORIATIC ARTHROPATHY
     Route: 042
  3. REMICADE [Suspect]
     Indication: PSORIATIC ARTHROPATHY
     Route: 042
     Dates: start: 20130529
  4. METHOTREXATE [Suspect]
     Indication: PSORIATIC ARTHROPATHY
     Route: 042
     Dates: start: 2011
  5. FOLIC ACID [Suspect]
     Indication: PSORIATIC ARTHROPATHY
     Route: 065

REACTIONS (16)
  - Dengue fever [Recovered/Resolved]
  - Syncope [Recovered/Resolved]
  - Viral infection [Unknown]
  - Arthritis [Not Recovered/Not Resolved]
  - Ingrowing nail [Recovered/Resolved]
  - Weight increased [Not Recovered/Not Resolved]
  - Weight loss poor [Not Recovered/Not Resolved]
  - Pyrexia [Recovering/Resolving]
  - Headache [Unknown]
  - Thirst [Unknown]
  - Arthralgia [Unknown]
  - Dizziness [Recovering/Resolving]
  - Asthenia [Recovering/Resolving]
  - Blood pressure increased [Not Recovered/Not Resolved]
  - Pharyngitis [Recovered/Resolved]
  - Skin lesion [Not Recovered/Not Resolved]
